FAERS Safety Report 24924486 (Version 2)
Quarter: 2025Q1

REPORT INFORMATION
  Report Type: Report from Study
  Country: PT (occurrence: PT)
  Receive Date: 20250204
  Receipt Date: 20250207
  Transmission Date: 20250408
  Serious: Yes (Death, Hospitalization)
  Sender: ABBVIE
  Company Number: PT-ABBVIE-6111011

PATIENT
  Age: 78 Year
  Sex: Male

DRUGS (19)
  1. CARBIDOPA\LEVODOPA [Suspect]
     Active Substance: CARBIDOPA\LEVODOPA
     Indication: Parkinson^s disease
     Route: 050
     Dates: start: 2024
  2. CARBIDOPA\LEVODOPA [Suspect]
     Active Substance: CARBIDOPA\LEVODOPA
     Route: 050
     Dates: start: 20230626
  3. LISINOPRIL AND HYDROCHLOROTHIAZIDE [Concomitant]
     Active Substance: HYDROCHLOROTHIAZIDE\LISINOPRIL
     Indication: Hypertension
     Dosage: 20 MG + 12.5 MG
     Route: 048
  4. ESCITALOPRAM [Concomitant]
     Active Substance: ESCITALOPRAM OXALATE
     Indication: Product used for unknown indication
     Dosage: 1 TABLET, STRENGTH:10 MG, BEFORE DUODOPA
     Route: 048
  5. SINEMET CR [Concomitant]
     Active Substance: CARBIDOPA\LEVODOPA
     Indication: Parkinson^s disease
     Route: 048
  6. AMANTADINE HYDROCHLORIDE [Concomitant]
     Active Substance: AMANTADINE HYDROCHLORIDE
     Indication: Parkinson^s disease
     Dosage: 1 TABLET, STRENGTH: 100 MG
     Route: 048
     Dates: start: 2023
  7. NOCDURNA [Concomitant]
     Active Substance: DESMOPRESSIN ACETATE
     Indication: Product used for unknown indication
     Route: 048
     Dates: start: 2024
  8. METFORMIN [Concomitant]
     Active Substance: METFORMIN HYDROCHLORIDE
     Indication: Diabetes mellitus
     Dosage: 1 TABLET, STRENGTH: 1000 MG, BEFORE DUODOPA
     Route: 048
  9. NEOBEFOL [Concomitant]
     Indication: Product used for unknown indication
     Route: 048
     Dates: start: 2023
  10. CLOZAPINE [Concomitant]
     Active Substance: CLOZAPINE
     Indication: Product used for unknown indication
     Dosage: 0.25 TABLET, STRENGTH: 25 MG
     Route: 048
     Dates: start: 2023
  11. ASPIRIN [Concomitant]
     Active Substance: ASPIRIN
     Indication: Product used for unknown indication
     Route: 048
     Dates: start: 2023
  12. ESOMEPRAZOLE [Concomitant]
     Active Substance: ESOMEPRAZOLE
     Indication: Product used for unknown indication
     Dosage: 1 TABLET, STRENGTH: 40MG, BEFORE DUODOPA
     Route: 048
  13. SOLIFENACIN [Concomitant]
     Active Substance: SOLIFENACIN
     Indication: Product used for unknown indication
     Route: 048
  14. CLONAZEPAM [Concomitant]
     Active Substance: CLONAZEPAM
     Indication: Product used for unknown indication
     Route: 048
  15. TAMSULOSIN [Concomitant]
     Active Substance: TAMSULOSIN
     Indication: Product used for unknown indication
     Dosage: 1 TABLET, STRENGTH: 0.4 MG
     Route: 048
     Dates: start: 2023
  16. AMLODIPINE [Concomitant]
     Active Substance: AMLODIPINE BESYLATE
     Indication: Hypertension
     Dosage: 1 TABLET, 5 MG, BEFORE DUODOPA
     Route: 048
  17. RIVASTIGMINE [Concomitant]
     Active Substance: RIVASTIGMINE
     Indication: Product used for unknown indication
     Dosage: 9.5MG/24H, START DATE: BEFORE DUODOPA
     Route: 062
  18. MIRTAZAPINE [Concomitant]
     Active Substance: MIRTAZAPINE
     Indication: Product used for unknown indication
     Dosage: 1 TABLET, STRENGTH: 15 MG
     Route: 048
     Dates: start: 2023
  19. DOMPERIDONE [Concomitant]
     Active Substance: DOMPERIDONE
     Indication: Product used for unknown indication
     Dosage: 2 TABLET, STRENGTH: 10 MG
     Route: 048
     Dates: start: 2023

REACTIONS (2)
  - Cardio-respiratory arrest [Fatal]
  - Secretion discharge [Recovered/Resolved]

NARRATIVE: CASE EVENT DATE: 20250101
